FAERS Safety Report 4892191-3 (Version None)
Quarter: 2006Q1

REPORT INFORMATION
  Report Type: 
  Country: None (occurrence: None)
  Receive Date: 20060126
  Receipt Date: 20060118
  Transmission Date: 20060701
  Serious: Yes (Other)
  Sender: FDA-Public Use
  Company Number: US-JNJFOC-20051204267

PATIENT
  Sex: Female
  Weight: 89.81 kg

DRUGS (2)
  1. ORTHO EVRA [Suspect]
     Route: 062
     Dates: start: 20030801, end: 20051201
  2. ORTHO EVRA [Suspect]
     Indication: MENSTRUATION IRREGULAR
     Route: 062
     Dates: start: 20030801, end: 20051201

REACTIONS (2)
  - OFF LABEL USE [None]
  - RETINAL VEIN OCCLUSION [None]
